FAERS Safety Report 5638999-8 (Version None)
Quarter: 2008Q1

REPORT INFORMATION
  Report Type: 
  Country: None (occurrence: None)
  Receive Date: 20080226
  Receipt Date: 20080218
  Transmission Date: 20080703
  Serious: Yes (Other)
  Sender: FDA-Public Use
  Company Number: PHEH2006US01632

PATIENT
  Age: 67 Year
  Sex: Male
  Weight: 91.156 kg

DRUGS (11)
  1. ZOMETA [Suspect]
     Indication: MULTIPLE MYELOMA
     Dosage: 4 MG MONTHLY
     Route: 042
     Dates: start: 20031103, end: 20051010
  2. ZOMETA [Suspect]
     Dosage: 3.5 MG MONTHLY
     Dates: start: 20031101, end: 20050901
  3. AREDIA [Suspect]
     Indication: MULTIPLE MYELOMA
     Dosage: 90 MG MONTHLY
     Route: 042
     Dates: start: 20020201, end: 20031006
  4. THALIDOMIDE [Concomitant]
     Indication: MULTIPLE MYELOMA
     Dosage: UNK, UNK
     Dates: start: 20010101
  5. MELPHALAN [Concomitant]
  6. PLAVIX [Concomitant]
     Dosage: 75 MG, QD
  7. LORTAB [Concomitant]
     Dosage: 500 MG, PRN
  8. GLYBURIDE [Concomitant]
     Dosage: UNK, QD
  9. ZANTAC 150 [Concomitant]
     Dosage: 150 MG, QD
  10. OS-CAL [Concomitant]
     Dosage: 1 TABLET  BID
  11. OS-CAL [Concomitant]
     Dosage: 1 TABLET  BID

REACTIONS (22)
  - ANXIETY [None]
  - BIOPSY [None]
  - BONE DISORDER [None]
  - BONE EROSION [None]
  - CALCIFICATION METASTATIC [None]
  - COMPRESSION FRACTURE [None]
  - DEBRIDEMENT [None]
  - DECREASED INTEREST [None]
  - DENTAL OPERATION [None]
  - ERYTHEMA [None]
  - INFECTION [None]
  - LYMPHADENOPATHY [None]
  - METASTASES TO SPINE [None]
  - NECK MASS [None]
  - OEDEMA MUCOSAL [None]
  - OSTEOLYSIS [None]
  - OSTEONECROSIS [None]
  - PAIN [None]
  - SOFT TISSUE DISORDER [None]
  - TOOTH EXTRACTION [None]
  - WOUND DRAINAGE [None]
  - WOUND HAEMORRHAGE [None]
